FAERS Safety Report 7755125-X (Version None)
Quarter: 2011Q3

REPORT INFORMATION
  Report Type: 
  Country: None (occurrence: None)
  Receive Date: 20110914
  Receipt Date: 20110831
  Transmission Date: 20111222
  Serious: Yes (Other)
  Sender: FDA-Public Use
  Company Number: TPA2011A05412

PATIENT
  Sex: Male
  Weight: 136.0791 kg

DRUGS (2)
  1. ACTOS [Suspect]
     Indication: DIABETES MELLITUS
     Dosage: 15 MG, 1 IN 1 D, PER ORAL : 45 MG, 1 IN 1 D, PER ORAL
     Route: 048
  2. ACTOS [Suspect]
     Indication: DIABETES MELLITUS
     Dosage: 15 MG, 1 IN 1 D, PER ORAL : 45 MG, 1 IN 1 D, PER ORAL
     Route: 048
     Dates: end: 20110830

REACTIONS (5)
  - SLUGGISHNESS [None]
  - MYALGIA [None]
  - SINUSITIS [None]
  - BLADDER CANCER [None]
  - MUSCLE SPASMS [None]
